FAERS Safety Report 14672587 (Version 1)
Quarter: 2018Q1

REPORT INFORMATION
  Report Type: Spontaneous
  Country: US (occurrence: US)
  Receive Date: 20180323
  Receipt Date: 20180323
  Transmission Date: 20180509
  Serious: No
  Sender: FDA-Public Use
  Company Number: US-PFIZER INC-2018120358

PATIENT
  Age: 53 Year
  Sex: Female

DRUGS (1)
  1. IBRANCE [Suspect]
     Active Substance: PALBOCICLIB
     Indication: BREAST CANCER FEMALE
     Dosage: 125 MG, CYCLIC (DAILY FOR 21 DAYS, FOLLOWED BY 7 DAYS OFF, REPEAT EVERY 28 DAYS. TAKE WITH FOOD)
     Route: 048
     Dates: start: 201802

REACTIONS (1)
  - Oral mucosal blistering [Unknown]

NARRATIVE: CASE EVENT DATE: 2018
